FAERS Safety Report 5865948-X (Version None)
Quarter: 2008Q3

REPORT INFORMATION
  Report Type: 
  Country: None (occurrence: None)
  Receive Date: 20080829
  Receipt Date: 20080820
  Transmission Date: 20090109
  Serious: Yes (Other)
  Sender: FDA-Public Use
  Company Number: AU-PFIZER INC-2008047588

PATIENT
  Age: 32 Year
  Sex: Female

DRUGS (3)
  1. CHANTIX [Suspect]
     Indication: SMOKING CESSATION THERAPY
     Route: 048
     Dates: start: 20080420, end: 20080515
  2. EFFEXOR XR [Concomitant]
     Indication: DEPRESSION
     Route: 048
  3. OROXINE [Concomitant]
     Route: 048

REACTIONS (6)
  - GINGIVAL PAIN [None]
  - GLOSSITIS [None]
  - LIP DRY [None]
  - LIP SWELLING [None]
  - MOUTH ULCERATION [None]
  - SWOLLEN TONGUE [None]
